FAERS Safety Report 9097882 (Version 1)
Quarter: 2013Q1

REPORT INFORMATION
  Report Type: Report from Study
  Country: CA (occurrence: CA)
  Receive Date: 20130212
  Receipt Date: 20130212
  Transmission Date: 20140127
  Serious: Yes (Hospitalization)
  Sender: FDA-Public Use
  Company Number: CA-JNJFOC-20130202244

PATIENT
  Age: 61 None
  Sex: Female

DRUGS (5)
  1. SIMPONI [Suspect]
     Indication: RHEUMATOID ARTHRITIS
     Route: 065
     Dates: start: 20120810
  2. PANTOLOC [Concomitant]
  3. ASPIRIN [Concomitant]
  4. NITRO SPRAY [Concomitant]
  5. BETA-BLOCKER (NAME UNSPECIFIED) [Concomitant]

REACTIONS (6)
  - Dyspnoea [Unknown]
  - Chest pain [Not Recovered/Not Resolved]
  - Hypertension [Not Recovered/Not Resolved]
  - Heart rate decreased [Not Recovered/Not Resolved]
  - Kidney infection [Recovered/Resolved]
  - Sinusitis [Recovered/Resolved]
